FAERS Safety Report 23249686 (Version 2)
Quarter: 2024Q2

REPORT INFORMATION
  Report Type: Report from Study
  Country: US (occurrence: US)
  Receive Date: 20231201
  Receipt Date: 20240425
  Transmission Date: 20240716
  Serious: Yes (Hospitalization, Other)
  Sender: FDA-Public Use
  Company Number: US-ABBVIE-5365327

PATIENT
  Sex: Female

DRUGS (2)
  1. HUMIRA [Suspect]
     Active Substance: ADALIMUMAB
     Indication: Colitis ulcerative
     Dosage: STRENGTH: 40 MILLIGRAM, CITRATE FREE?LAST ADMINISTRATION DATE: 2023
     Route: 058
     Dates: start: 20230602
  2. HUMIRA [Suspect]
     Active Substance: ADALIMUMAB
     Dosage: STRENGTH: 40 MILLIGRAM, CITRATE FREE?FIRST AND LAST ADMINISTRATION DATE: 2023
     Route: 058

REACTIONS (3)
  - White blood cell count increased [Recovered/Resolved]
  - Pyrexia [Unknown]
  - Ovarian cancer [Recovered/Resolved]

NARRATIVE: CASE EVENT DATE: 20230101
